FAERS Safety Report 23340016 (Version 1)
Quarter: 2023Q4

REPORT INFORMATION
  Report Type: Spontaneous
  Country: GB (occurrence: GB)
  Receive Date: 20231227
  Receipt Date: 20231227
  Transmission Date: 20240109
  Serious: Yes (Disabling)
  Sender: FDA-Public Use
  Company Number: GB-MHRA-TPP23536635C7748392YC1702567739757

PATIENT
  Age: 13 Year
  Sex: Male
  Weight: 37 kg

DRUGS (5)
  1. MONTELUKAST [Suspect]
     Active Substance: MONTELUKAST SODIUM
     Indication: Ill-defined disorder
     Dosage: UNK
     Route: 065
     Dates: start: 20231114
  2. BECLOMETHASONE DIPROPIONATE [Concomitant]
     Active Substance: BECLOMETHASONE DIPROPIONATE
     Indication: Ill-defined disorder
     Dosage: 2 PUFFS, TWO TIMES A DAY
     Route: 065
     Dates: start: 20220517
  3. MONTELUKAST [Concomitant]
     Active Substance: MONTELUKAST SODIUM
     Indication: Ill-defined disorder
     Dosage: 1 DOSAGE FORM AT NIGHT
     Route: 065
     Dates: start: 20230424
  4. ALBUTEROL [Concomitant]
     Active Substance: ALBUTEROL
     Indication: Ill-defined disorder
     Dosage: 2 DOSAGE FORM, PRN
     Dates: start: 20220517
  5. SERETIDE [Concomitant]
     Active Substance: FLUTICASONE PROPIONATE\SALMETEROL XINAFOATE
     Indication: Ill-defined disorder
     Dosage: 2 DOSAGE FORM, TWO TIMES A DAY
     Dates: start: 20231114

REACTIONS (1)
  - Mood altered [Unknown]

NARRATIVE: CASE EVENT DATE: 20231214
